FAERS Safety Report 16340667 (Version 3)
Quarter: 2019Q2

REPORT INFORMATION
  Report Type: Spontaneous
  Country: BG (occurrence: BG)
  Receive Date: 20190522
  Receipt Date: 20190623
  Transmission Date: 20190711
  Serious: Yes (Other)
  Sender: FDA-Public Use
  Company Number: BG-UCBSA-2019021047

PATIENT
  Age: 30 Year
  Sex: Female

DRUGS (3)
  1. TOPIRAMATE. [Suspect]
     Active Substance: TOPIRAMATE
     Indication: FOCAL DYSCOGNITIVE SEIZURES
     Dosage: 300 MILLIGRAM
     Route: 048
  2. VALPROATE [Suspect]
     Active Substance: VALPROIC ACID
     Indication: FOCAL DYSCOGNITIVE SEIZURES
     Dosage: 1500 MILLIGRAM
  3. KEPPRA [Suspect]
     Active Substance: LEVETIRACETAM
     Indication: FOCAL DYSCOGNITIVE SEIZURES
     Dosage: 1500-3000 MG

REACTIONS (5)
  - Seizure [Unknown]
  - Paradoxical drug reaction [Unknown]
  - Partial seizures [Unknown]
  - Focal dyscognitive seizures [Unknown]
  - Status epilepticus [Unknown]
